FAERS Safety Report 12718544 (Version 1)
Quarter: 2016Q3

REPORT INFORMATION
  Report Type: Report from Study
  Country: ES (occurrence: ES)
  Receive Date: 20160906
  Receipt Date: 20160906
  Transmission Date: 20161109
  Serious: Yes (Hospitalization, Other)
  Sender: FDA-Public Use
  Company Number: ES-BRISTOL-MYERS SQUIBB COMPANY-BMS-2016-070562

PATIENT
  Age: 68 Year
  Sex: Male
  Weight: 84.5 kg

DRUGS (6)
  1. GABAPENTIN. [Concomitant]
     Active Substance: GABAPENTIN
     Indication: PRODUCT USED FOR UNKNOWN INDICATION
     Dosage: UNK
     Route: 065
     Dates: start: 201503
  2. SEVREDOL [Concomitant]
     Active Substance: MORPHINE
     Indication: PRODUCT USED FOR UNKNOWN INDICATION
     Dosage: UNK, PRN
     Route: 065
     Dates: start: 20150430
  3. NIVOLUMAB [Suspect]
     Active Substance: NIVOLUMAB
     Indication: NEOPLASM
     Dosage: 3 MG/KG, UNK
     Route: 042
     Dates: start: 20150330
  4. ZOLEDRONIC ACID [Concomitant]
     Active Substance: ZOLEDRONIC ACID
     Indication: PRODUCT USED FOR UNKNOWN INDICATION
     Dosage: UNK
     Route: 065
     Dates: start: 201308
  5. IPILIMUMAB [Suspect]
     Active Substance: IPILIMUMAB
     Indication: NEOPLASM
     Dosage: 1 MG/KG, UNK
     Route: 042
     Dates: start: 20150330
  6. MORPHINE [Concomitant]
     Active Substance: MORPHINE
     Indication: PRODUCT USED FOR UNKNOWN INDICATION
     Dosage: UNK
     Route: 065
     Dates: start: 201503

REACTIONS (1)
  - Eosinophilic fasciitis [Recovering/Resolving]

NARRATIVE: CASE EVENT DATE: 20160824
